FAERS Safety Report 18361859 (Version 1)
Quarter: 2020Q4

REPORT INFORMATION
  Report Type: Spontaneous
  Country: US (occurrence: US)
  Receive Date: 20201008
  Receipt Date: 20201008
  Transmission Date: 20210114
  Serious: Yes (Death, Other)
  Sender: FDA-Public Use
  Company Number: US-GILEAD-2020-0497913

PATIENT
  Age: 52 Year
  Sex: Male
  Weight: 79.5 kg

DRUGS (19)
  1. DEXAMETHASONE. [Concomitant]
     Active Substance: DEXAMETHASONE
     Dosage: 10 MG, QD
     Route: 042
     Dates: start: 20200612, end: 20200704
  2. FLUCONAZOLE. [Concomitant]
     Active Substance: FLUCONAZOLE
     Dosage: 200 MG, QD
     Dates: start: 20200628, end: 20200704
  3. INSULIN LISPRO [Concomitant]
     Active Substance: INSULIN LISPRO
     Dosage: UNK
     Dates: start: 20200611, end: 20200704
  4. PLASMA [Concomitant]
     Active Substance: HUMAN PLASMA
     Dosage: UNK
     Dates: start: 20200612, end: 20200612
  5. CEFTRIAXONE. [Concomitant]
     Active Substance: CEFTRIAXONE
     Dosage: 1 G, ONCE
     Route: 042
     Dates: start: 20200612, end: 20200612
  6. MICAFUNGIN. [Concomitant]
     Active Substance: MICAFUNGIN SODIUM
     Dosage: 100 MG, QD
     Route: 042
     Dates: start: 20200622, end: 20200627
  7. CEFEPIME [Concomitant]
     Active Substance: CEFEPIME HYDROCHLORIDE
     Dosage: 1 G, BID
     Route: 042
     Dates: start: 20200620, end: 20200622
  8. FAMOTIDINE. [Concomitant]
     Active Substance: FAMOTIDINE
     Dosage: 20 MG
     Route: 042
     Dates: start: 20200611, end: 20200704
  9. AZITHROMYCIN ANHYDROUS. [Concomitant]
     Active Substance: AZITHROMYCIN ANHYDROUS
     Dosage: 500 MG, QD
     Route: 042
     Dates: start: 20200612, end: 20200623
  10. VANCOMYCIN [Concomitant]
     Active Substance: VANCOMYCIN
     Dosage: UNK
     Route: 042
     Dates: start: 20200619, end: 20200625
  11. DAPTOMYCIN. [Concomitant]
     Active Substance: DAPTOMYCIN
     Dosage: 500 MG
     Route: 042
     Dates: start: 20200622, end: 20200703
  12. INSULIN GLARGINE [Concomitant]
     Active Substance: INSULIN GLARGINE
     Dosage: UNK
     Dates: start: 20200611, end: 20200704
  13. METRONIDAZOLE. [Concomitant]
     Active Substance: METRONIDAZOLE
     Dosage: 500 MG, Q8H
     Route: 042
     Dates: start: 20200622, end: 20200704
  14. CEFEPIME [Concomitant]
     Active Substance: CEFEPIME HYDROCHLORIDE
     Dosage: 1 G, Q8H
     Route: 042
     Dates: start: 20200623, end: 20200623
  15. FLUCONAZOLE. [Concomitant]
     Active Substance: FLUCONAZOLE
     Dosage: 400 MG, Q2HR
     Route: 042
     Dates: start: 20200628, end: 20200628
  16. INSULIN REGULAR HM [Concomitant]
     Active Substance: INSULIN NOS
     Dosage: UNK
     Dates: start: 20200611, end: 20200704
  17. REMDESIVIR. [Suspect]
     Active Substance: REMDESIVIR
     Indication: COVID-19 PNEUMONIA
     Dosage: 100 MG, QD
     Route: 042
     Dates: start: 20200616, end: 20200623
  18. MEROPENEM. [Concomitant]
     Active Substance: MEROPENEM
     Dosage: 0.5 G, Q8H
     Route: 042
     Dates: start: 20200623, end: 20200704
  19. ZINC SULFATE. [Concomitant]
     Active Substance: ZINC SULFATE
     Dosage: 220 MG, QD
     Route: 048
     Dates: start: 20200612, end: 20200630

REACTIONS (5)
  - Cardiac arrest [Not Recovered/Not Resolved]
  - Bacteraemia [Unknown]
  - Death [Fatal]
  - Acute kidney injury [Unknown]
  - Renal failure [Not Recovered/Not Resolved]

NARRATIVE: CASE EVENT DATE: 20200704
